APPROVED DRUG PRODUCT: SOMA
Active Ingredient: CARISOPRODOL
Strength: 250MG
Dosage Form/Route: TABLET;ORAL
Application: N011792 | Product #004 | TE Code: AB
Applicant: MYLAN SPECIALTY LP
Approved: Sep 13, 2007 | RLD: Yes | RS: Yes | Type: RX